FAERS Safety Report 8809714 (Version 2)
Quarter: 2015Q2

REPORT INFORMATION
  Report Type: Report from Study
  Country: US (occurrence: US)
  Receive Date: 20120926
  Receipt Date: 20150408
  Transmission Date: 20150821
  Serious: Yes (Death)
  Sender: FDA-Public Use
  Company Number: US-ROCHE-1126388

PATIENT
  Sex: Female
  Weight: 60.84 kg

DRUGS (11)
  1. HYDROXYZINE [Concomitant]
     Active Substance: HYDROXYZINE\HYDROXYZINE HYDROCHLORIDE
  2. DARVOCET [Concomitant]
     Active Substance: ACETAMINOPHEN\PROPOXYPHENE HYDROCHLORIDE
     Dosage: EVERY 4-6HOURS
     Route: 065
  3. DECADRON [Concomitant]
     Active Substance: DEXAMETHASONE
     Route: 042
  4. AVASTIN [Suspect]
     Active Substance: BEVACIZUMAB
     Indication: OVARIAN CANCER
     Dosage: THERAPY RECEIVED DATES: 19/SEP/2008 AND 10/OCT/2008
     Route: 042
     Dates: start: 20080829
  5. TAMOXIFEN [Concomitant]
     Active Substance: TAMOXIFEN
  6. LORTAB (UNITED STATES) [Concomitant]
  7. RITALIN [Concomitant]
     Active Substance: METHYLPHENIDATE HYDROCHLORIDE
     Route: 048
  8. LUNESTA [Concomitant]
     Active Substance: ESZOPICLONE
  9. NEULASTA [Concomitant]
     Active Substance: PEGFILGRASTIM
     Route: 058
  10. KYTRIL [Concomitant]
     Active Substance: GRANISETRON HYDROCHLORIDE
     Indication: NAUSEA
     Route: 042
  11. KYTRIL [Concomitant]
     Active Substance: GRANISETRON HYDROCHLORIDE
     Indication: VOMITING

REACTIONS (16)
  - Pain [Unknown]
  - Tinnitus [Unknown]
  - Paraesthesia [Unknown]
  - Peripheral swelling [Unknown]
  - Pruritus [Unknown]
  - Vomiting [Unknown]
  - Fatigue [Unknown]
  - Dyspnoea [Unknown]
  - Nausea [Unknown]
  - Chest pain [Unknown]
  - Cough [Unknown]
  - Pyrexia [Unknown]
  - Off label use [Unknown]
  - Disease progression [Fatal]
  - Diarrhoea [Unknown]
  - Photopsia [Unknown]
